FAERS Safety Report 9856178 (Version 1)
Quarter: 2014Q1

REPORT INFORMATION
  Report Type: Report from Study
  Country: FR (occurrence: FR)
  Receive Date: 20140130
  Receipt Date: 20140130
  Transmission Date: 20141002
  Serious: Yes (Other)
  Sender: FDA-Public Use
  Company Number: FR-PFIZER INC-2014021160

PATIENT
  Age: 59 Year
  Sex: Female

DRUGS (4)
  1. CYTARABINE [Suspect]
     Indication: ACUTE LEUKAEMIA
     Dosage: 200 MG/M2, 1X/DAY
     Route: 042
     Dates: start: 20100723, end: 20100729
  2. GEMTUZUMAB OZOGAMICIN [Suspect]
     Indication: ACUTE LEUKAEMIA
     Dosage: 6 MG/M2, 1X/DAY
     Route: 042
     Dates: start: 20100726, end: 20100726
  3. CERUBIDINE [Suspect]
     Indication: ACUTE LEUKAEMIA
     Dosage: 60 MG/M2, 1X/DAY
     Route: 042
     Dates: start: 20100723, end: 20100725
  4. HEPARINE [Concomitant]
     Indication: PROPHYLAXIS
     Dosage: UNK
     Dates: start: 201007, end: 20100806

REACTIONS (3)
  - Renal failure acute [Recovered/Resolved]
  - Intra-abdominal haemorrhage [Recovered/Resolved]
  - Muscle haemorrhage [Recovered/Resolved]
